FAERS Safety Report 19461595 (Version 3)
Quarter: 2021Q4

REPORT INFORMATION
  Report Type: Report from Study
  Country: BR (occurrence: BR)
  Receive Date: 20210625
  Receipt Date: 20211124
  Transmission Date: 20220303
  Serious: Yes (Death)
  Sender: FDA-Public Use
  Company Number: BR-PFIZER INC-2021739183

PATIENT
  Age: 75 Year
  Sex: Female

DRUGS (1)
  1. PIPERACILLIN SODIUM\TAZOBACTAM SODIUM [Suspect]
     Active Substance: PIPERACILLIN SODIUM\TAZOBACTAM SODIUM
     Dosage: UNK
     Dates: start: 202006, end: 202007

REACTIONS (3)
  - Trichosporon infection [Fatal]
  - Fungaemia [Fatal]
  - Systemic candida [Fatal]

NARRATIVE: CASE EVENT DATE: 20200601
